FAERS Safety Report 8248120-8 (Version None)
Quarter: 2012Q1

REPORT INFORMATION
  Report Type: 
  Country: None (occurrence: None)
  Receive Date: 20120330
  Receipt Date: 20120321
  Transmission Date: 20120608
  Serious: Yes (Other)
  Sender: FDA-Public Use
  Company Number: JP-BRISTOL-MYERS SQUIBB COMPANY-16467995

PATIENT
  Sex: Female

DRUGS (2)
  1. ABILIFY [Suspect]
     Indication: SCHIZOPHRENIA
     Dosage: FORMULATION:12MG TABS
     Route: 048
  2. AKINETON [Suspect]
     Route: 065

REACTIONS (2)
  - OVERDOSE [None]
  - ILEUS PARALYTIC [None]
